FAERS Safety Report 11193318 (Version 1)
Quarter: 2015Q2

REPORT INFORMATION
  Report Type: Spontaneous
  Country: US (occurrence: US)
  Receive Date: 20150616
  Receipt Date: 20150616
  Transmission Date: 20150821
  Serious: No
  Sender: FDA-Public Use
  Company Number: US-PFIZER INC-2015198041

PATIENT
  Age: 30 Year
  Sex: Female
  Weight: 87 kg

DRUGS (1)
  1. ADVIL [Suspect]
     Active Substance: IBUPROFEN
     Indication: TOOTHACHE
     Dosage: 2 TABLETS (200 MG EACH) EVERY 4-6 HOURS AS NEEDED
     Route: 048
     Dates: start: 20150608

REACTIONS (2)
  - Tooth infection [Not Recovered/Not Resolved]
  - Drug effect incomplete [Not Recovered/Not Resolved]

NARRATIVE: CASE EVENT DATE: 20150608
